FAERS Safety Report 8018883-5 (Version None)
Quarter: 2012Q1

REPORT INFORMATION
  Report Type: 
  Country: None (occurrence: None)
  Receive Date: 20120103
  Receipt Date: 20111229
  Transmission Date: 20120608
  Serious: Yes (Other)
  Sender: FDA-Public Use
  Company Number: US-PFIZER INC-2011316526

PATIENT

DRUGS (2)
  1. ZOLOFT [Suspect]
     Indication: DEPRESSION
     Dosage: 50 MG, 1X/DAY
     Route: 048
     Dates: start: 20101001
  2. ZOLOFT [Suspect]
     Dosage: UNK
     Route: 048

REACTIONS (3)
  - THROMBOCYTOPENIA [None]
  - CONTUSION [None]
  - PLATELET AGGREGATION [None]
